FAERS Safety Report 7606378-X (Version None)
Quarter: 2011Q3

REPORT INFORMATION
  Report Type: 
  Country: None (occurrence: None)
  Receive Date: 20110712
  Receipt Date: 20110712
  Transmission Date: 20111222
  Serious: No
  Sender: FDA-Public Use
  Company Number: None

PATIENT
  Age: 70 Year
  Sex: Male
  Weight: 124.5 kg

DRUGS (1)
  1. CITALOPRAM HYDROBROMIDE [Suspect]
     Indication: DEPRESSION
     Dosage: MG PO
     Route: 048
     Dates: start: 20110609, end: 20110626

REACTIONS (3)
  - SWELLING FACE [None]
  - LIP SWELLING [None]
  - SWOLLEN TONGUE [None]
